FAERS Safety Report 5277036-4 (Version None)
Quarter: 2007Q1

REPORT INFORMATION
  Report Type: 
  Country: None (occurrence: None)
  Receive Date: 20070327
  Receipt Date: 20070212
  Transmission Date: 20070707
  Serious: No
  Sender: FDA-Public Use
  Company Number: US-BRISTOL-MYERS SQUIBB COMPANY-13676663

PATIENT
  Age: 30 Year
  Sex: Female
  Weight: 63 kg

DRUGS (1)
  1. ORENCIA [Suspect]

REACTIONS (1)
  - MYALGIA [None]
